FAERS Safety Report 11606019 (Version 3)
Quarter: 2017Q1

REPORT INFORMATION
  Report Type: Report from Study
  Country: US (occurrence: US)
  Receive Date: 20151007
  Receipt Date: 20170214
  Transmission Date: 20170428
  Serious: No
  Sender: FDA-Public Use
  Company Number: PHEH2015US019765

PATIENT
  Age: 32 Year
  Sex: Female

DRUGS (1)
  1. AFINITOR [Suspect]
     Active Substance: EVEROLIMUS
     Indication: ANGIOMYOLIPOMA
     Dosage: 7.5 MG, QD
     Route: 048
     Dates: start: 20150104

REACTIONS (8)
  - Nasal congestion [Unknown]
  - Pharyngeal ulceration [Unknown]
  - Cough [Recovering/Resolving]
  - Throat irritation [Unknown]
  - Mouth ulceration [Unknown]
  - Scab [Unknown]
  - Skin discolouration [Unknown]
  - Dysphagia [Unknown]

NARRATIVE: CASE EVENT DATE: 20150908
